FAERS Safety Report 23847948 (Version 1)
Quarter: 2024Q2

REPORT INFORMATION
  Report Type: Spontaneous
  Country: DE (occurrence: DE)
  Receive Date: 20240513
  Receipt Date: 20240513
  Transmission Date: 20240716
  Serious: Yes (Other)
  Sender: FDA-Public Use
  Company Number: DE-MYLANLABS-2024M1041922

PATIENT
  Age: 68 Year
  Sex: Female

DRUGS (9)
  1. METHOTREXATE [Suspect]
     Active Substance: METHOTREXATE
     Indication: Palmoplantar pustulosis
     Dosage: UNK
     Route: 065
  2. FUMARIC ACID [Suspect]
     Active Substance: FUMARIC ACID
     Indication: Palmoplantar pustulosis
     Dosage: UNK
     Route: 065
  3. ACITRETIN [Suspect]
     Active Substance: ACITRETIN
     Indication: Palmoplantar pustulosis
     Dosage: UNK
     Route: 065
  4. ALITRETINOIN [Suspect]
     Active Substance: ALITRETINOIN
     Indication: Palmoplantar pustulosis
     Dosage: UNK
     Route: 065
  5. SIMVASTATIN [Concomitant]
     Active Substance: SIMVASTATIN
     Indication: Hypercholesterolaemia
     Dosage: UNK
     Route: 065
  6. LEVOTHYROXINE [Concomitant]
     Active Substance: LEVOTHYROXINE\LEVOTHYROXINE SODIUM
     Indication: Hypothyroidism
     Dosage: UNK
     Route: 065
  7. CITALOPRAM [Concomitant]
     Active Substance: CITALOPRAM\CITALOPRAM HYDROBROMIDE
     Indication: Depression
     Dosage: UNK
     Route: 065
  8. MOMETASONE FUROATE [Concomitant]
     Active Substance: MOMETASONE FUROATE
     Indication: Palmoplantar pustulosis
     Dosage: UNK UNK, BID
     Route: 065
  9. MOMETASONE FUROATE [Concomitant]
     Active Substance: MOMETASONE FUROATE
     Dosage: UNK UNK, 3XW; DOSE REDUCED FROM TWICE DAILY TO THREE TIMES WEEKLY
     Route: 065

REACTIONS (2)
  - Drug ineffective for unapproved indication [Unknown]
  - Off label use [Unknown]
